FAERS Safety Report 13610828 (Version 1)
Quarter: 2017Q2

REPORT INFORMATION
  Report Type: Spontaneous
  Country: TH (occurrence: TH)
  Receive Date: 20170605
  Receipt Date: 20170605
  Transmission Date: 20170830
  Serious: Yes (Hospitalization, Other)
  Sender: FDA-Public Use
  Company Number: PHHY2017TH079467

PATIENT
  Age: 33 Year
  Sex: Female

DRUGS (38)
  1. PREDNISOLONE. [Suspect]
     Active Substance: PREDNISOLONE
     Dosage: 5 DF, QD
     Route: 048
  2. DILTIAZEM. [Suspect]
     Active Substance: DILTIAZEM
     Dosage: 1X2 PC
     Route: 065
     Dates: start: 20170319
  3. DILTIAZEM. [Suspect]
     Active Substance: DILTIAZEM
     Dosage: 1X2 PC
     Route: 065
     Dates: start: 20170323
  4. DAPSONE. [Suspect]
     Active Substance: DAPSONE
     Indication: PRODUCT USED FOR UNKNOWN INDICATION
     Dosage: 1 DF, QD
     Route: 048
  5. OMEPRAZOLE. [Concomitant]
     Active Substance: OMEPRAZOLE
     Indication: PRODUCT USED FOR UNKNOWN INDICATION
     Dosage: 1 DF, BID
     Route: 048
     Dates: start: 20170418
  6. FOLIC ACID. [Concomitant]
     Active Substance: FOLIC ACID
     Indication: PRODUCT USED FOR UNKNOWN INDICATION
     Dosage: 1X1 PC
     Route: 065
  7. ANTITHYMOCYTE IMMUNOGLOBULIN [Concomitant]
     Active Substance: THYMOCYTE IMMUNE GLOBULIN NOS
     Dosage: 50 MG, UNK
     Route: 065
  8. CPM [Concomitant]
     Indication: PRODUCT USED FOR UNKNOWN INDICATION
     Route: 065
  9. TACROLIMUS. [Suspect]
     Active Substance: TACROLIMUS
     Dosage: 5.5/5.5
     Route: 065
     Dates: start: 20170323
  10. SODAMINT [Concomitant]
     Indication: PRODUCT USED FOR UNKNOWN INDICATION
     Dosage: 4X4 PC
     Route: 065
  11. MYCOPHENOLATE [Suspect]
     Active Substance: MYCOPHENOLIC ACID
     Dosage: 360 MG, UNK
     Route: 065
     Dates: start: 20170319
  12. MYCOPHENOLATE [Suspect]
     Active Substance: MYCOPHENOLIC ACID
     Dosage: 540 MG, UNK
     Route: 065
     Dates: start: 20170323
  13. MYCOPHENOLATE [Suspect]
     Active Substance: MYCOPHENOLIC ACID
     Dosage: 540 MG, UNK
     Route: 065
     Dates: start: 20170329
  14. MYCOPHENOLATE [Suspect]
     Active Substance: MYCOPHENOLIC ACID
     Dosage: 1 DF, 12 HR (360 MG)
     Route: 048
  15. TACROLIMUS. [Suspect]
     Active Substance: TACROLIMUS
     Dosage: 5 DF, 12 HR (1 MG)
     Route: 048
  16. DILTIAZEM. [Suspect]
     Active Substance: DILTIAZEM
     Indication: PRODUCT USED FOR UNKNOWN INDICATION
     Dosage: 1X2 PC
     Route: 065
     Dates: start: 20170314
  17. DILTIAZEM. [Suspect]
     Active Substance: DILTIAZEM
     Dosage: 1X2 PC
     Route: 065
     Dates: start: 20170329
  18. ACETAMINOPHEN. [Concomitant]
     Active Substance: ACETAMINOPHEN
     Indication: PRODUCT USED FOR UNKNOWN INDICATION
     Route: 065
  19. GANCICLOVIR. [Concomitant]
     Active Substance: GANCICLOVIR
     Indication: PRODUCT USED FOR UNKNOWN INDICATION
     Dosage: 60 MG, QD
     Route: 042
     Dates: start: 20170418
  20. METHYLPREDNISOLONE. [Suspect]
     Active Substance: METHYLPREDNISOLONE
     Indication: RENAL TRANSPLANT
     Route: 065
  21. PREDNISOLONE. [Suspect]
     Active Substance: PREDNISOLONE
     Dosage: 8X1 PC
     Route: 065
     Dates: start: 20170319
  22. PENTAMIDINE [Concomitant]
     Active Substance: PENTAMIDINE
     Indication: PRODUCT USED FOR UNKNOWN INDICATION
     Dosage: 200 MG, Q1 MONTH X 3 MONTH
  23. TACROLIMUS. [Suspect]
     Active Substance: TACROLIMUS
     Indication: RENAL TRANSPLANT
     Dosage: 5/5
     Route: 065
     Dates: start: 20170314
  24. TACROLIMUS. [Suspect]
     Active Substance: TACROLIMUS
     Dosage: 5/5
     Route: 065
     Dates: start: 20170329
  25. TACROLIMUS. [Suspect]
     Active Substance: TACROLIMUS
     Dosage: 1 DF, 12 HR (0.5 MG)
     Route: 048
  26. PREDNISOLONE. [Suspect]
     Active Substance: PREDNISOLONE
     Dosage: 7X1 PC
     Route: 065
     Dates: start: 20170323
  27. LORAZEPAM. [Concomitant]
     Active Substance: LORAZEPAM
     Indication: PRODUCT USED FOR UNKNOWN INDICATION
     Dosage: 1X1 HR, PRN
     Route: 065
  28. MYCOPHENOLATE [Suspect]
     Active Substance: MYCOPHENOLIC ACID
     Dosage: 1 DF, 12 HR (180 MG)
     Route: 048
  29. TACROLIMUS. [Suspect]
     Active Substance: TACROLIMUS
     Dosage: 6/5.5
     Route: 065
     Dates: start: 20170319
  30. TACROLIMUS. [Suspect]
     Active Substance: TACROLIMUS
     Dosage: 5/5
     Route: 065
     Dates: start: 20170327
  31. PREDNISOLONE. [Suspect]
     Active Substance: PREDNISOLONE
     Indication: RENAL TRANSPLANT
     Dosage: 8X1 PC
     Route: 065
     Dates: start: 20170314
  32. PREDNISOLONE. [Suspect]
     Active Substance: PREDNISOLONE
     Dosage: 7X1 PC
     Route: 065
     Dates: start: 20170327
  33. PREDNISOLONE. [Suspect]
     Active Substance: PREDNISOLONE
     Dosage: 7X1 PC
     Route: 065
     Dates: start: 20170329
  34. HYDRALAZINE [Concomitant]
     Active Substance: HYDRALAZINE HYDROCHLORIDE
     Indication: PRODUCT USED FOR UNKNOWN INDICATION
     Dosage: 1X4
     Route: 065
  35. INSULIN GLARGINE [Concomitant]
     Active Substance: INSULIN GLARGINE
     Indication: PRODUCT USED FOR UNKNOWN INDICATION
     Dosage: 06 UNIT HR
     Route: 058
  36. MYCOPHENOLATE [Suspect]
     Active Substance: MYCOPHENOLIC ACID
     Indication: RENAL TRANSPLANT
     Dosage: 360 MG, UNK
     Route: 065
     Dates: start: 20170314
  37. MYCOPHENOLATE [Suspect]
     Active Substance: MYCOPHENOLIC ACID
     Dosage: 540 MG, UNK
     Route: 065
     Dates: start: 20170327
  38. DILTIAZEM. [Suspect]
     Active Substance: DILTIAZEM
     Dosage: 1X2 PC
     Route: 065
     Dates: start: 20170327

REACTIONS (6)
  - Urticaria [Unknown]
  - Glucose-6-phosphate dehydrogenase deficiency [Unknown]
  - Methaemoglobinaemia [Recovering/Resolving]
  - Blood pressure decreased [Unknown]
  - Angioedema [Unknown]
  - Kidney transplant rejection [Recovering/Resolving]

NARRATIVE: CASE EVENT DATE: 20170329
